FAERS Safety Report 24794737 (Version 1)
Quarter: 2024Q4

REPORT INFORMATION
  Report Type: Report from Study
  Country: CA (occurrence: CA)
  Receive Date: 20241231
  Receipt Date: 20241231
  Transmission Date: 20250115
  Serious: Yes (Other)
  Sender: VERITY PHARMACEUTICALS INC.
  Company Number: CA-VER-202400592

PATIENT
  Age: 90 Year
  Sex: Male

DRUGS (12)
  1. TRELSTAR [Suspect]
     Active Substance: TRIPTORELIN PAMOATE
     Dosage: POWDER FOR PROLONGED-RELEASE SUSPENSION FOR INJECT
     Route: 030
     Dates: start: 20220726, end: 20220726
  2. TRELSTAR [Suspect]
     Active Substance: TRIPTORELIN PAMOATE
     Dosage: POWDER FOR PROLONGED-RELEASE SUSPENSION FOR INJECT
     Route: 030
     Dates: start: 20220503, end: 20220503
  3. TRELSTAR [Suspect]
     Active Substance: TRIPTORELIN PAMOATE
     Dosage: POWDER FOR PROLONGED-RELEASE SUSPENSION FOR INJECT
     Route: 030
     Dates: start: 20221025, end: 20221025
  4. TRELSTAR [Suspect]
     Active Substance: TRIPTORELIN PAMOATE
     Dosage: POWDER FOR PROLONGED-RELEASE SUSPENSION FOR INJECT
     Route: 030
     Dates: start: 20230117, end: 20230117
  5. TRELSTAR [Suspect]
     Active Substance: TRIPTORELIN PAMOATE
     Dosage: POWDER FOR PROLONGED-RELEASE SUSPENSION FOR INJECT
     Route: 030
     Dates: start: 20230412, end: 20230412
  6. TRELSTAR [Suspect]
     Active Substance: TRIPTORELIN PAMOATE
     Dosage: POWDER FOR PROLONGED-RELEASE SUSPENSION FOR INJECT
     Route: 030
     Dates: start: 20230706, end: 20230706
  7. TRELSTAR [Suspect]
     Active Substance: TRIPTORELIN PAMOATE
     Dosage: POWDER FOR PROLONGED-RELEASE SUSPENSION FOR INJECT
     Route: 030
     Dates: start: 20230928, end: 20230928
  8. TRELSTAR [Suspect]
     Active Substance: TRIPTORELIN PAMOATE
     Dosage: POWDER FOR PROLONGED-RELEASE SUSPENSION FOR INJECT
     Route: 030
     Dates: start: 20231228, end: 20231228
  9. TRELSTAR [Suspect]
     Active Substance: TRIPTORELIN PAMOATE
     Dosage: POWDER FOR PROLONGED-RELEASE SUSPENSION FOR INJECT
     Route: 030
     Dates: start: 20240327, end: 20240327
  10. TRELSTAR [Suspect]
     Active Substance: TRIPTORELIN PAMOATE
     Dosage: POWDER FOR PROLONGED-RELEASE SUSPENSION FOR INJECT
     Route: 030
     Dates: start: 20240620, end: 20240620
  11. TRELSTAR [Suspect]
     Active Substance: TRIPTORELIN PAMOATE
     Dosage: POWDER FOR PROLONGED-RELEASE SUSPENSION FOR INJECT
     Route: 030
     Dates: start: 20240910, end: 20240910
  12. TRELSTAR [Suspect]
     Active Substance: TRIPTORELIN PAMOATE
     Dosage: POWDER FOR PROLONGED-RELEASE SUSPENSION FOR INJECT
     Route: 030
     Dates: start: 20241205, end: 20241205

REACTIONS (4)
  - Disease progression [Not Recovered/Not Resolved]
  - Dysuria [Not Recovered/Not Resolved]
  - Metastases to lymph nodes [Not Recovered/Not Resolved]
  - Inappropriate schedule of product administration [Unknown]

NARRATIVE: CASE EVENT DATE: 20220726
